FAERS Safety Report 9227633 (Version 1)
Quarter: 2013Q1

REPORT INFORMATION
  Report Type: Spontaneous
  Country: US (occurrence: None)
  Receive Date: 20121012
  Receipt Date: 20121012
  Transmission Date: 20140127
  Serious: Yes (Other)
  Sender: FDA-Public Use
  Company Number: 1000030561

PATIENT
  Age: 58 Year
  Sex: Female
  Weight: 77 kg

DRUGS (8)
  1. LEXAPRO [Suspect]
     Indication: DEPRESSION
     Dosage: 1 IN 1 D
     Dates: start: 2004, end: 2005
  2. XANAX XR [Suspect]
     Indication: ANXIETY
     Dosage: 1MG, 3 IN 1 D
     Route: 048
     Dates: start: 2004, end: 2011
  3. XANAX XR [Suspect]
     Indication: PANIC ATTACK
     Dosage: 1MG, 3 IN 1 D
     Route: 048
     Dates: start: 2004, end: 2011
  4. XANAX XR [Suspect]
     Indication: DEPRESSION
     Dosage: 1MG, 3 IN 1 D
     Route: 048
     Dates: start: 2004, end: 2011
  5. ALPRAZOLAM [Suspect]
     Indication: ANXIETY
     Dosage: 1 MG, 3 IN 1 D
     Route: 048
     Dates: start: 2011, end: 2011
  6. ALPRAZOLAM [Suspect]
     Indication: PANIC ATTACK
     Dosage: 1 MG, 3 IN 1 D
     Route: 048
     Dates: start: 2011, end: 2011
  7. ALPRAZOLAM [Suspect]
     Indication: DEPRESSION
     Dosage: 1 MG, 3 IN 1 D
     Route: 048
     Dates: start: 2011, end: 2011
  8. LIPITOR (ATORVASTATIN CALCIUM) (ATORVASTATIN CALCIUM) [Concomitant]

REACTIONS (5)
  - Anxiety [None]
  - Fatigue [None]
  - Feeling abnormal [None]
  - Abdominal discomfort [None]
  - Malaise [None]
